FAERS Safety Report 4953252-3 (Version None)
Quarter: 2006Q1

REPORT INFORMATION
  Report Type: 
  Country: None (occurrence: None)
  Receive Date: 20060324
  Receipt Date: 20041222
  Transmission Date: 20060701
  Serious: Yes (Hospitalization, Disabling)
  Sender: FDA-Public Use
  Company Number: US-MERCK-0412USA02835

PATIENT
  Age: 39 Year
  Sex: Male

DRUGS (1)
  1. VIOXX [Suspect]
     Indication: ARTHRITIS
     Route: 048
     Dates: start: 20030101, end: 20040101

REACTIONS (9)
  - AORTIC VALVE INCOMPETENCE [None]
  - BICUSPID AORTIC VALVE [None]
  - BLOOD PRESSURE SYSTOLIC DECREASED [None]
  - DILATATION VENTRICULAR [None]
  - INTERNAL INJURY [None]
  - MYOCARDIAL INFARCTION [None]
  - NECK PAIN [None]
  - NERVOUS SYSTEM DISORDER [None]
  - SHOULDER PAIN [None]
